FAERS Safety Report 8042012-5 (Version None)
Quarter: 2011Q4

REPORT INFORMATION
  Report Type: 
  Country: None (occurrence: None)
  Receive Date: 20111205
  Receipt Date: 20110930
  Transmission Date: 20120403
  Serious: Yes (Other)
  Sender: FDA-Public Use
  Company Number: 163-22393-11100191

PATIENT

DRUGS (3)
  1. GRANISETRON [Concomitant]
  2. ISTODAX [Suspect]
     Indication: T-CELL LYMPHOMA
  3. ONDANSETRON [Concomitant]

REACTIONS (1)
  - ELECTROCARDIOGRAM QT PROLONGED [None]
